FAERS Safety Report 25200906 (Version 2)
Quarter: 2025Q2

REPORT INFORMATION
  Report Type: Report from Study
  Country: DE (occurrence: DE)
  Receive Date: 20250415
  Receipt Date: 20250520
  Transmission Date: 20250717
  Serious: Yes (Hospitalization)
  Sender: ABBVIE
  Company Number: DE-ABBVIE-6182245

PATIENT
  Age: 69 Year
  Sex: Male
  Weight: 62 kg

DRUGS (9)
  1. FOSCARBIDOPA\FOSLEVODOPA [Suspect]
     Active Substance: FOSCARBIDOPA\FOSLEVODOPA
     Indication: Parkinson^s disease
     Route: 050
     Dates: start: 20231212
  2. FOSCARBIDOPA\FOSLEVODOPA [Suspect]
     Active Substance: FOSCARBIDOPA\FOSLEVODOPA
     Route: 050
  3. FOSCARBIDOPA\FOSLEVODOPA [Suspect]
     Active Substance: FOSCARBIDOPA\FOSLEVODOPA
     Route: 050
  4. QUETIAPINE [Concomitant]
     Active Substance: QUETIAPINE
     Indication: Product used for unknown indication
  5. CLOZAPINE [Concomitant]
     Active Substance: CLOZAPINE
     Indication: Product used for unknown indication
  6. MELATONIN [Concomitant]
     Active Substance: MELATONIN
     Indication: Product used for unknown indication
  7. Vitamin B duo [Concomitant]
     Indication: Product used for unknown indication
  8. VITAMIN B12 [Concomitant]
     Active Substance: CYANOCOBALAMIN
     Indication: Product used for unknown indication
  9. Omniflora [Concomitant]
     Indication: Product used for unknown indication

REACTIONS (28)
  - Infection [Unknown]
  - Hyperkinesia [Not Recovered/Not Resolved]
  - On and off phenomenon [Not Recovered/Not Resolved]
  - Limb discomfort [Unknown]
  - Behaviour disorder [Unknown]
  - Parkinson^s disease [Unknown]
  - Urinary tract infection pseudomonal [Unknown]
  - Dry skin [Unknown]
  - General physical health deterioration [Unknown]
  - Psychomotor hyperactivity [Unknown]
  - Bradykinesia [Unknown]
  - Hallucination, visual [Unknown]
  - Aggression [Unknown]
  - Parkinsonism [Unknown]
  - Pyrexia [Unknown]
  - Metapneumovirus infection [Unknown]
  - Pleurectomy [Unknown]
  - Aspiration [Unknown]
  - Inflammatory marker increased [Unknown]
  - Mobility decreased [Unknown]
  - Stoma site irritation [Unknown]
  - Reduced facial expression [Unknown]
  - Dysarthria [Unknown]
  - Pain [Unknown]
  - Muscle rigidity [Unknown]
  - Aphonia [Unknown]
  - Speech disorder [Unknown]
  - Breath sounds abnormal [Unknown]

NARRATIVE: CASE EVENT DATE: 20240126
